FAERS Safety Report 8575858-5 (Version None)
Quarter: 2012Q3

REPORT INFORMATION
  Report Type: 
  Country: None (occurrence: None)
  Receive Date: 20120807
  Receipt Date: 20120723
  Transmission Date: 20120928
  Serious: Yes (Death, Hospitalization)
  Sender: FDA-Public Use
  Company Number: DE-UCBSA-054473

PATIENT
  Sex: Female

DRUGS (23)
  1. VIMPAT [Suspect]
     Dosage: ROUTE: STOMACH TUBE FROM 6.00 PM(18/FEB/2012)
     Dates: start: 20120218, end: 20120219
  2. KEPPRA [Suspect]
     Dosage: ROUTE: STOMACH TUBE
  3. ASPIRIN [Concomitant]
     Indication: ATRIAL FIBRILLATION
     Dosage: ROUTE: STOMACH TUBE
  4. TORSEMIDE [Concomitant]
     Indication: CARDIAC FAILURE
     Dosage: ROUTE: STOMACH TUBE
  5. TRILEPTAL [Concomitant]
     Dosage: ROUTE: STOMACH TUBE,LIQUID
     Dates: start: 20120215
  6. ACYCLOVIR [Concomitant]
     Indication: RASMUSSEN ENCEPHALITIS
     Route: 042
  7. TRILEPTAL [Concomitant]
     Indication: STATUS EPILEPTICUS
     Dosage: ROUTE: STOMACH TUBE, 300 MG
     Dates: start: 20120207, end: 20120201
  8. VIMPAT [Suspect]
     Indication: STATUS EPILEPTICUS
     Route: 042
     Dates: start: 20120217, end: 20120218
  9. NEXIUM [Concomitant]
     Dosage: ROUTE: STOMACH TUBE,20 MUPS
  10. BISOPROLOL FUMARATE [Concomitant]
     Indication: CARDIAC FAILURE
     Dosage: FIRST DOSE: 2.5 MG, SECOND DOSE: 5 MG, ROUTE: STOMACH TUBE
  11. BERLTHYROX [Concomitant]
     Indication: THYROXINE THERAPY
     Dosage: ROUTE: STOMACH TUBE
  12. KEPPRA [Suspect]
     Dosage: 2X500 MG
  13. KEPPRA [Suspect]
     Dosage: DAILY DOSE: 1500 MG
  14. ASPIRIN [Concomitant]
     Indication: CORONARY ARTERY DISEASE
     Dosage: ROUTE: STOMACH TUBE
  15. PANTOPRAZOLE [Concomitant]
  16. TORSEMIDE [Concomitant]
     Indication: RENAL FAILURE
     Dosage: ROUTE: STOMACH TUBE
  17. VALPROATE SODIUM [Concomitant]
  18. VIMPAT [Suspect]
     Dosage: ROUTE: STOMACH TUBE FROM 6.00 PM(18/FEB/2012)
     Dates: start: 20120218, end: 20120219
  19. KEPPRA [Suspect]
     Indication: CONVULSION
     Dosage: 2X 500 MG PER DAY
     Route: 042
  20. FOLIC ACID [Concomitant]
     Indication: FOLATE DEFICIENCY
     Dosage: ROUTE: STOMACH TUBE
  21. ENOXAPARIN SODIUM [Concomitant]
     Indication: THROMBOSIS PROPHYLAXIS
     Route: 058
     Dates: start: 20120213
  22. VIMPAT [Suspect]
     Indication: CONVULSION
     Route: 042
     Dates: start: 20120217, end: 20120218
  23. BISOPROLOL FUMARATE [Concomitant]
     Indication: RENAL FAILURE
     Dosage: FIRST DOSE: 2.5 MG, SECOND DOSE: 5 MG, ROUTE: STOMACH TUBE

REACTIONS (16)
  - ACUTE MYOCARDIAL INFARCTION [None]
  - URINARY RETENTION [None]
  - ARRHYTHMIA [None]
  - STATUS EPILEPTICUS [None]
  - HAEMORRHAGIC ANAEMIA [None]
  - APRAXIA [None]
  - AORTIC DILATATION [None]
  - WEIGHT DECREASED [None]
  - CARDIAC FAILURE [None]
  - CONVULSION [None]
  - DYSPHAGIA [None]
  - URINARY TRACT INFECTION [None]
  - RASMUSSEN ENCEPHALITIS [None]
  - APHASIA [None]
  - SOPOR [None]
  - SOMNOLENCE [None]
